FAERS Safety Report 20291674 (Version 1)
Quarter: 2022Q1

REPORT INFORMATION
  Report Type: Spontaneous
  Country: US (occurrence: None)
  Receive Date: 20220104
  Receipt Date: 20220104
  Transmission Date: 20220423
  Serious: Yes (Hospitalization)
  Sender: FDA-Public Use
  Company Number: None

PATIENT
  Age: 23 Year
  Sex: Female

DRUGS (2)
  1. ETESEVIMAB [Suspect]
     Active Substance: ETESEVIMAB
  2. BAMLANIVIMAB [Suspect]
     Active Substance: BAMLANIVIMAB

REACTIONS (5)
  - Maternal exposure during pregnancy [None]
  - Foetal exposure during pregnancy [None]
  - Dyspnoea [None]
  - Heart rate increased [None]
  - Hyperhidrosis [None]

NARRATIVE: CASE EVENT DATE: 20220104
